FAERS Safety Report 5995871-1 (Version None)
Quarter: 2008Q4

REPORT INFORMATION
  Report Type: 
  Country: None (occurrence: None)
  Receive Date: 20081212
  Receipt Date: 20081209
  Transmission Date: 20090506
  Serious: Yes (Other)
  Sender: FDA-Public Use
  Company Number: IN-ROXANE LABORATORIES, INC.-2008-RO-00377RO

PATIENT
  Age: 58 Year
  Sex: Male

DRUGS (10)
  1. METHOTREXATE [Suspect]
     Indication: PSORIASIS
     Dates: start: 19940101, end: 20040101
  2. METHOTREXATE [Suspect]
     Dates: start: 20050101, end: 20050101
  3. CLOBETASOL PROPIONATE [Concomitant]
     Indication: PSORIASIS
     Route: 061
  4. MOMETASONE FUROATE [Concomitant]
     Indication: PSORIASIS
     Route: 061
  5. BETAMETHASONE DIPROPIONATE [Concomitant]
     Indication: PSORIASIS
     Route: 061
  6. ADRIAMYCIN PFS [Concomitant]
     Indication: HODGKIN'S DISEASE
     Route: 042
  7. BLEOMYCIN SULFATE [Concomitant]
     Indication: HODGKIN'S DISEASE
     Route: 042
  8. VINBLASTINE SULFATE [Concomitant]
     Indication: HODGKIN'S DISEASE
     Route: 042
  9. DEXAMETHASONE [Concomitant]
     Indication: HODGKIN'S DISEASE
     Route: 042
  10. WHITE SOFT PARAFFIN [Concomitant]
     Indication: PSORIASIS

REACTIONS (2)
  - HODGKIN'S DISEASE [None]
  - METASTASES TO BONE MARROW [None]
